FAERS Safety Report 7538087-X (Version None)
Quarter: 2011Q2

REPORT INFORMATION
  Report Type: 
  Country: None (occurrence: None)
  Receive Date: 20110609
  Receipt Date: 20010301
  Transmission Date: 20111010
  Serious: Yes (Death)
  Sender: FDA-Public Use
  Company Number: PHBS2001VE13557

PATIENT
  Sex: Male

DRUGS (1)
  1. FORADIL [Suspect]
     Dosage: 12 UG, UNK

REACTIONS (1)
  - DEATH [None]
